FAERS Safety Report 5680114-9 (Version None)
Quarter: 2008Q1

REPORT INFORMATION
  Report Type: 
  Country: None (occurrence: None)
  Receive Date: 20080326
  Receipt Date: 20080317
  Transmission Date: 20080703
  Serious: Yes (Hospitalization)
  Sender: FDA-Public Use
  Company Number: DE-JNJFOC-20080304441

PATIENT
  Sex: Male

DRUGS (4)
  1. REOPRO [Suspect]
     Indication: ACUTE CORONARY SYNDROME
  2. HEPARIN [Concomitant]
  3. ACETYLSALICYLIC ACID SRT [Concomitant]
  4. CLOPIDOGREL [Concomitant]

REACTIONS (2)
  - HAEMORRHAGE [None]
  - THROMBOSIS IN DEVICE [None]
